FAERS Safety Report 21209309 (Version 4)
Quarter: 2023Q1

REPORT INFORMATION
  Report Type: Other
  Country: CA (occurrence: CA)
  Receive Date: 20220813
  Receipt Date: 20230206
  Transmission Date: 20230418
  Serious: Yes (Other)
  Sender: FDA-Public Use
  Company Number: CA-CELLTRION INC.-2022CA012555

PATIENT

DRUGS (19)
  1. RITUXIMAB [Suspect]
     Active Substance: RITUXIMAB
     Indication: Granulomatosis with polyangiitis
     Dosage: 500 MILLIGRAM, 1 EVERY 1 DAYS
     Route: 042
  2. RITUXIMAB [Suspect]
     Active Substance: RITUXIMAB
     Dosage: 637.8 MILLIGRAM, 1 EVERY 1 WEEKS
     Route: 042
  3. BENADRYL [Concomitant]
     Active Substance: DIPHENHYDRAMINE HYDROCHLORIDE
     Indication: Premedication
     Dosage: 50 MILLIGRAM
     Route: 048
  4. BENADRYL [Concomitant]
     Active Substance: DIPHENHYDRAMINE HYDROCHLORIDE
     Indication: Premedication
     Dosage: 25 MILLIGRAM
     Route: 048
  5. BETAMETHASONE VALERATE [Concomitant]
     Active Substance: BETAMETHASONE VALERATE
     Dosage: 0.1 %
     Route: 065
  6. CALCIUM [Concomitant]
     Active Substance: CALCIUM
     Dosage: 500 MILLIGRAM, 1 EVERY 1 DAYS
     Route: 065
  7. ELIDEL [Concomitant]
     Active Substance: PIMECROLIMUS
     Dosage: 1 %
     Route: 065
  8. FOLIC ACID [Concomitant]
     Active Substance: FOLIC ACID
     Dosage: 5 MILLIGRAM
     Route: 065
  9. LANSOPRAZOLE [Concomitant]
     Active Substance: LANSOPRAZOLE
     Dosage: 30 MILLIGRAM, 1 EVERY 1 DAYS
     Route: 065
  10. NITROGEN [Concomitant]
     Active Substance: NITROGEN
  11. METHOTREXATE [Concomitant]
     Active Substance: METHOTREXATE
     Indication: Granulomatosis with polyangiitis
     Dosage: 25 MILLIGRAM, 1 EVERY 1 WEEKS
     Route: 048
  12. PREDNISONE [Concomitant]
     Active Substance: PREDNISONE
     Indication: Granulomatosis with polyangiitis
     Dosage: 15 MILLIGRAM, 1 EVERY 1 WEEKS
     Route: 065
  13. PREDNISONE [Concomitant]
     Active Substance: PREDNISONE
     Dosage: 2.5 MILLIGRAM, 1 EVERY 1 DAYS
     Route: 065
  14. PREDNISONE [Concomitant]
     Active Substance: PREDNISONE
     Indication: Granulomatosis with polyangiitis
     Dosage: 35 MILLIGRAM, 1 EVERY 1 WEEKS
     Route: 065
  15. RISEDRONATE SODIUM [Concomitant]
     Active Substance: RISEDRONATE SODIUM
     Dosage: 35 MILLIGRAM, 1 EVERY 1 WEEKS
     Route: 065
  16. SOLU-MEDROL [Concomitant]
     Active Substance: METHYLPREDNISOLONE SODIUM SUCCINATE
     Indication: Premedication
     Dosage: 100 MILLIGRAM
     Route: 042
  17. SULFATRIM [Concomitant]
     Active Substance: SULFAMETHOXAZOLE\TRIMETHOPRIM
     Dosage: 160 MILLIGRAM, 3 EVERY 1 WEEKS
     Route: 065
  18. TYLENOL [Concomitant]
     Active Substance: ACETAMINOPHEN
     Indication: Premedication
     Dosage: 650 MILLIGRAM
     Route: 048
  19. ZINC [Concomitant]
     Active Substance: ZINC
     Dosage: 50 MILLIGRAM, 1 EVERY 1 DAYS
     Route: 065

REACTIONS (10)
  - Cataract [Recovered/Resolved]
  - Limb mass [Recovered/Resolved]
  - Macular degeneration [Recovered/Resolved]
  - Palisaded neutrophilic granulomatous dermatitis [Recovered/Resolved]
  - Scab [Recovered/Resolved]
  - Skin disorder [Recovered/Resolved]
  - Weight decreased [Recovered/Resolved]
  - COVID-19 [Recovered/Resolved]
  - Rash [Recovered/Resolved]
  - Off label use [Unknown]
